FAERS Safety Report 25069396 (Version 1)
Quarter: 2025Q1

REPORT INFORMATION
  Report Type: Report from Study
  Country: CN (occurrence: CN)
  Receive Date: 20250312
  Receipt Date: 20250312
  Transmission Date: 20250408
  Serious: Yes (Death)
  Sender: ROCHE
  Company Number: CN-ROCHE-10000230058

PATIENT
  Age: 52 Year
  Sex: Male

DRUGS (2)
  1. ATEZOLIZUMAB [Suspect]
     Active Substance: ATEZOLIZUMAB
     Indication: Hepatic cancer
     Dosage: 1200/20ML
     Route: 042
     Dates: start: 20250123
  2. BEVACIZUMAB [Suspect]
     Active Substance: BEVACIZUMAB
     Indication: Hepatic cancer
     Dosage: 100MG/ VIAL
     Route: 042
     Dates: start: 20250123

REACTIONS (1)
  - Death [Fatal]

NARRATIVE: CASE EVENT DATE: 20250310
